FAERS Safety Report 5191636-1 (Version None)
Quarter: 2006Q4

REPORT INFORMATION
  Report Type: 
  Country: None (occurrence: None)
  Receive Date: 20061219
  Receipt Date: 20061212
  Transmission Date: 20070319
  Serious: Yes (Hospitalization, Other)
  Sender: FDA-Public Use
  Company Number: 2006150532

PATIENT
  Age: 24 Year
  Sex: Male
  Weight: 75 kg

DRUGS (4)
  1. LYRICA [Suspect]
     Indication: BIPOLAR II DISORDER
     Dosage: 300 MG (300 MG, 1 IN 1 D), ORAL
     Route: 048
     Dates: start: 20060501
  2. TRAZODONE HCL [Suspect]
     Dosage: 100 MG, ORAL
     Route: 048
     Dates: start: 20060501
  3. CLONIDINE [Suspect]
     Dosage: 0.1 MG, ORAL
     Route: 048
     Dates: start: 20060501
  4. DULOXETINE HYDROCHLORIDE (DULOXETINE HYDROCHLORIDE) [Suspect]
     Dosage: 180 MG, ORAL
     Route: 048
     Dates: start: 20060501

REACTIONS (3)
  - MULTIPLE DRUG OVERDOSE [None]
  - PNEUMONIA ASPIRATION [None]
  - SUICIDE ATTEMPT [None]
